FAERS Safety Report 8050351-7 (Version None)
Quarter: 2012Q1

REPORT INFORMATION
  Report Type: 
  Country: None (occurrence: None)
  Receive Date: 20120117
  Receipt Date: 20120110
  Transmission Date: 20120608
  Serious: Yes (Other)
  Sender: FDA-Public Use
  Company Number: US-ABBOTT-12P-163-0893265-00

PATIENT
  Sex: Male
  Weight: 66.284 kg

DRUGS (7)
  1. DIOVAN HCT [Concomitant]
     Indication: HYPERTENSION
     Dosage: 160/25 MG DAILY
     Route: 048
  2. HUMIRA [Suspect]
     Indication: CROHN'S DISEASE
     Route: 058
     Dates: end: 20111103
  3. CELEXA [Concomitant]
     Indication: ANXIETY
     Dosage: DAILY
     Route: 048
  4. IQCOR [Concomitant]
     Indication: BLOOD CHOLESTEROL INCREASED
     Route: 048
  5. HUMIRA [Suspect]
  6. PENTASA [Concomitant]
     Indication: CROHN'S DISEASE
     Route: 048
  7. PRILOSEC [Concomitant]
     Indication: GASTROOESOPHAGEAL REFLUX DISEASE
     Dosage: 20 MG DAILY BY MOUTH

REACTIONS (2)
  - ABDOMINAL PAIN UPPER [None]
  - SCAR [None]
